FAERS Safety Report 10560913 (Version 4)
Quarter: 2015Q2

REPORT INFORMATION
  Report Type: Spontaneous
  Country: US (occurrence: US)
  Receive Date: 20141103
  Receipt Date: 20150601
  Transmission Date: 20150821
  Serious: Yes (Other)
  Sender: FDA-Public Use
  Company Number: US-BAYER-2014-161653

PATIENT
  Age: 25 Year
  Sex: Female
  Weight: 82 kg

DRUGS (5)
  1. DIFLUCAN [Concomitant]
     Active Substance: FLUCONAZOLE
     Dosage: 150 MG, UNK
  2. DOXYCYCLINE. [Concomitant]
     Active Substance: DOXYCYCLINE
     Dosage: 100 MG, BID
  3. MACROBID [Concomitant]
     Active Substance: NITROFURANTOIN\NITROFURANTOIN MONOHYDRATE
     Dosage: 100 MG, BID
  4. MIRENA [Suspect]
     Active Substance: LEVONORGESTREL
     Indication: CONTRACEPTION
     Dosage: 20 MCG/24HR, CONT
     Route: 015
     Dates: start: 20081002, end: 20131112
  5. MOTRIN [Concomitant]
     Active Substance: IBUPROFEN

REACTIONS (11)
  - Uterine perforation [Not Recovered/Not Resolved]
  - Nausea [None]
  - Injury [Not Recovered/Not Resolved]
  - Device issue [None]
  - Breast tenderness [None]
  - Pregnancy with contraceptive device [None]
  - Drug ineffective [None]
  - Depression [None]
  - Anxiety [None]
  - Device misuse [None]
  - Pain [Not Recovered/Not Resolved]

NARRATIVE: CASE EVENT DATE: 2008
